FAERS Safety Report 26013353 (Version 1)
Quarter: 2025Q4

REPORT INFORMATION
  Report Type: Report from Study
  Country: CA (occurrence: CA)
  Receive Date: 20251107
  Receipt Date: 20251107
  Transmission Date: 20260117
  Serious: Yes (Hospitalization, Other)
  Sender: TEVA
  Company Number: CA-TEVA-VS-3383484

PATIENT
  Age: 49 Year
  Sex: Female

DRUGS (6)
  1. AJOVY [Suspect]
     Active Substance: FREMANEZUMAB-VFRM
     Indication: Migraine prophylaxis
     Dosage: LAST DOSE ADMINISTERED DATE 2025-10-03
     Route: 058
     Dates: start: 20251003, end: 20251003
  2. ELAVIL [Concomitant]
     Active Substance: AMITRIPTYLINE HYDROCHLORIDE
     Indication: Product used for unknown indication
     Dosage: DISCONTINUED
     Route: 065
  3. AVENTYL [Concomitant]
     Active Substance: NORTRIPTYLINE HYDROCHLORIDE
     Indication: Product used for unknown indication
     Dosage: DISCONTINUED
     Route: 065
  4. CANDESARTAN [Concomitant]
     Active Substance: CANDESARTAN
     Indication: Product used for unknown indication
     Dosage: DISCONTINUED
     Route: 065
  5. TOPIRAMATE [Concomitant]
     Active Substance: TOPIRAMATE
     Indication: Product used for unknown indication
     Dosage: DISCONTINUED
     Route: 065
  6. DIVALPROEX SODIUM [Concomitant]
     Active Substance: DIVALPROEX SODIUM
     Indication: Product used for unknown indication
     Dosage: DISCONTINUED
     Route: 065

REACTIONS (23)
  - Epilepsy [Unknown]
  - Dyspnoea [Unknown]
  - Fatigue [Unknown]
  - Abdominal distension [Recovering/Resolving]
  - Feeling hot [Unknown]
  - Head discomfort [Unknown]
  - Eye pruritus [Unknown]
  - Malaise [Unknown]
  - Impaired driving ability [Unknown]
  - Hypersomnia [Unknown]
  - Headache [Unknown]
  - Inflammation [Unknown]
  - Hypersensitivity [Unknown]
  - Dysphagia [Unknown]
  - Coordination abnormal [Unknown]
  - Throat irritation [Unknown]
  - Gait disturbance [Unknown]
  - Eye pain [Unknown]
  - Chest discomfort [Unknown]
  - Paraesthesia [Unknown]
  - Pulmonary oedema [Unknown]
  - Pain in extremity [Unknown]
  - Agitation [Unknown]

NARRATIVE: CASE EVENT DATE: 20251001
